FAERS Safety Report 9644202 (Version 1)
Quarter: 2013Q4

REPORT INFORMATION
  Report Type: Spontaneous
  Country: FR (occurrence: FR)
  Receive Date: 20131024
  Receipt Date: 20131024
  Transmission Date: 20140711
  Serious: Yes (Hospitalization)
  Sender: FDA-Public Use
  Company Number: FR-TEVA-438154ISR

PATIENT
  Age: 19 Year
  Sex: Female

DRUGS (2)
  1. ANTADYS [Suspect]
     Indication: DYSMENORRHOEA
     Route: 048
     Dates: start: 20130909
  2. AERIUS [Concomitant]
     Dosage: LONG-TERM TREATMENT

REACTIONS (6)
  - Angioedema [Recovered/Resolved]
  - Pruritus [Recovered/Resolved]
  - Conjunctival hyperaemia [Recovered/Resolved]
  - Nasal obstruction [Recovered/Resolved]
  - Palatal oedema [Recovered/Resolved]
  - Dyspnoea [Recovered/Resolved]
